FAERS Safety Report 26121742 (Version 2)
Quarter: 2025Q4

REPORT INFORMATION
  Report Type: Spontaneous
  Country: EU (occurrence: EU)
  Receive Date: 20251204
  Receipt Date: 20251224
  Transmission Date: 20260117
  Serious: Yes (Hospitalization)
  Sender: TEVA
  Company Number: EU-TEVA-VS-3399020

PATIENT
  Age: 62 Year
  Sex: Male

DRUGS (5)
  1. TADALAFIL [Suspect]
     Active Substance: TADALAFIL
     Indication: Personality disorder
     Route: 065
     Dates: start: 2024
  2. RISPERIDONE [Suspect]
     Active Substance: RISPERIDONE
     Indication: Mania
     Dosage: CONTROLLED RELEASE
     Route: 065
     Dates: start: 2024, end: 2024
  3. VENLAFAXINE [Concomitant]
     Active Substance: VENLAFAXINE HYDROCHLORIDE
     Indication: Depression
     Route: 065
  4. LITHIUM [Suspect]
     Active Substance: LITHIUM
     Indication: Mania
     Route: 065
     Dates: start: 2024, end: 2024
  5. GABAPENTIN [Concomitant]
     Active Substance: GABAPENTIN
     Indication: Depression
     Route: 065

REACTIONS (5)
  - Psychomotor hyperactivity [Unknown]
  - Euphoric mood [Unknown]
  - Treatment noncompliance [Unknown]
  - Therapy non-responder [Unknown]
  - Disinhibition [Unknown]

NARRATIVE: CASE EVENT DATE: 20240101
